FAERS Safety Report 9054208 (Version 4)
Quarter: 2013Q1

REPORT INFORMATION
  Report Type: Report from Study
  Country: JP (occurrence: JP)
  Receive Date: 20130117
  Receipt Date: 20130306
  Transmission Date: 20140127
  Serious: Yes (Hospitalization, Other)
  Sender: FDA-Public Use
  Company Number: JP-ROCHE-GNE302241

PATIENT
  Age: 38 None
  Sex: Female
  Weight: 50.2 kg

DRUGS (21)
  1. OMALIZUMAB [Suspect]
     Indication: ASTHMA
     Route: 058
     Dates: start: 20090804
  2. OMALIZUMAB [Suspect]
     Dosage: UNK
     Route: 058
     Dates: start: 20090818
  3. OMALIZUMAB [Suspect]
     Dosage: UNK
     Route: 058
     Dates: start: 20090901
  4. OMALIZUMAB [Suspect]
     Dosage: UNK
     Route: 058
     Dates: start: 20090915
  5. OMALIZUMAB [Suspect]
     Dosage: UNK
     Route: 058
     Dates: start: 20090929
  6. OMALIZUMAB [Suspect]
     Dosage: UNK
     Route: 058
     Dates: start: 20091013
  7. OMALIZUMAB [Suspect]
     Dosage: UNK
     Route: 058
     Dates: start: 20091027, end: 20091031
  8. OMALIZUMAB [Suspect]
     Route: 058
  9. FLUTICASONE PROPIONATE/SALMETEROL XINAFOATE [Concomitant]
     Indication: ASTHMA
     Dosage: INHALATION
     Route: 065
     Dates: start: 20080701
  10. SINGULAIR [Concomitant]
     Indication: ASTHMA
     Dosage: 10 X 1
     Route: 065
     Dates: start: 20030502
  11. THEO-DUR [Concomitant]
     Indication: ASTHMA
     Dosage: 400 MG X 2
     Route: 065
     Dates: start: 19930223
  12. PREDONINE [Concomitant]
     Indication: PRODUCT USED FOR UNKNOWN INDICATION
     Dosage: UNK
     Route: 065
     Dates: start: 19950119
  13. PREDONINE [Concomitant]
     Dosage: DOSE INCRESED
     Route: 065
  14. PREDONINE [Concomitant]
     Dosage: UNK
     Route: 065
  15. PREDONINE [Concomitant]
     Dosage: UNK
     Route: 065
  16. CLARITH [Concomitant]
     Indication: PRODUCT USED FOR UNKNOWN INDICATION
     Dosage: UNK
     Route: 065
     Dates: start: 19910717
  17. INFLUENZA VACCINE [Concomitant]
     Indication: PRODUCT USED FOR UNKNOWN INDICATION
     Dosage: UNK
     Route: 065
     Dates: start: 20091013
  18. RITODRINE HYDROCHLORIDE [Concomitant]
     Indication: PRODUCT USED FOR UNKNOWN INDICATION
     Dosage: UNK
     Route: 065
     Dates: start: 20100206, end: 20100209
  19. ASPIRIN [Concomitant]
     Dosage: 100 MG X 1
     Route: 048
  20. CICLESONIDE [Concomitant]
  21. RITODRINE [Concomitant]

REACTIONS (7)
  - Premature labour [Recovered/Resolved]
  - Asthma [Recovered/Resolved]
  - Nasopharyngitis [Recovered/Resolved]
  - Peak expiratory flow rate decreased [Unknown]
  - Forced expiratory volume decreased [Unknown]
  - Drug ineffective [Unknown]
  - Exposure during pregnancy [Unknown]
